FAERS Safety Report 9185260 (Version 1)
Quarter: 2012Q4

REPORT INFORMATION
  Report Type: 
  Country: CH (occurrence: CH)
  Receive Date: 20121031
  Receipt Date: 20121031
  Transmission Date: 20130627
  Serious: Yes (Hospitalization)
  Sender: FDA-Public Use
  Company Number: CH-BAYER-2012-114191

PATIENT
  Age: 79 Year
  Sex: Male

DRUGS (8)
  1. CIPROXIN [Suspect]
     Indication: ENTEROCOLITIS INFECTIOUS
     Dosage: 500 mg, BID
     Route: 048
     Dates: start: 20120820, end: 20120823
  2. CORDARONE [Suspect]
     Indication: ATRIAL FIBRILLATION
     Dosage: UNK
     Route: 048
     Dates: start: 201202, end: 201206
  3. CORDARONE [Suspect]
     Indication: ATRIAL FLUTTER
  4. ASPIRIN CARDIO [Concomitant]
     Dosage: 100 mg, QID
  5. ZESTRIL [Concomitant]
     Dosage: 5 mg, QD
     Route: 048
  6. BELOC ZOK [Concomitant]
     Dosage: 50 mg, QD
     Route: 048
  7. ATORVASTATIN [Concomitant]
     Dosage: 40 mg, QD
     Route: 048
     Dates: end: 20120823
  8. CLEXANE [Concomitant]
     Dosage: 100 mg/ml, QD
     Route: 058
     Dates: end: 201208

REACTIONS (3)
  - Interstitial lung disease [Recovering/Resolving]
  - Interstitial lung disease [Recovering/Resolving]
  - Dyspnoea [Recovering/Resolving]
